FAERS Safety Report 21337313 (Version 1)
Quarter: 2022Q3

REPORT INFORMATION
  Report Type: Spontaneous
  Country: FR (occurrence: FR)
  Receive Date: 20220915
  Receipt Date: 20220915
  Transmission Date: 20221027
  Serious: Yes (Hospitalization)
  Sender: FDA-Public Use
  Company Number: None

PATIENT
  Age: 95 Year
  Sex: Female

DRUGS (6)
  1. BORTEZOMIB [Suspect]
     Active Substance: BORTEZOMIB
     Indication: Primary amyloidosis
     Dosage: 1 MILLIGRAM/SQ. METER, ON DAY 1, DAY 8, DAY 15 AND DAY 22
     Route: 058
  2. DEXAMETHASONE [Suspect]
     Active Substance: DEXAMETHASONE
     Indication: Primary amyloidosis
     Dosage: 10 MILLIGRAM, ON DAY 1, DAY 8, DAY 15 AND DAY 22
     Route: 048
  3. BENDAMUSTINE HYDROCHLORIDE [Suspect]
     Active Substance: BENDAMUSTINE HYDROCHLORIDE
     Indication: Primary amyloidosis
     Dosage: 50 MILLIGRAM/SQ. METER, ON DAY 1 AND DAY 2
     Route: 065
  4. RITUXIMAB [Suspect]
     Active Substance: RITUXIMAB
     Indication: Primary amyloidosis
     Dosage: 500 MILLIGRAM/SQ. METER, MONTHLY
     Route: 042
  5. RITUXIMAB [Suspect]
     Active Substance: RITUXIMAB
     Dosage: 375 MILLIGRAM/SQ. METER, ON DAY 1
     Route: 065
  6. CYCLOPHOSPHAMIDE [Suspect]
     Active Substance: CYCLOPHOSPHAMIDE
     Indication: Primary amyloidosis
     Dosage: 100 MILLIGRAM, ON DAY 1, DAY 8 AND DAY 15
     Route: 048

REACTIONS (6)
  - Atrial fibrillation [Unknown]
  - Erysipelas [Unknown]
  - Cardiac failure congestive [Unknown]
  - Gout [Unknown]
  - Acute kidney injury [Unknown]
  - Neutropenia [Unknown]
